FAERS Safety Report 15349891 (Version 2)
Quarter: 2018Q3

REPORT INFORMATION
  Report Type: Spontaneous
  Country: DE (occurrence: DE)
  Receive Date: 20180904
  Receipt Date: 20180904
  Transmission Date: 20181010
  Serious: Yes (Hospitalization)
  Sender: FDA-Public Use
  Company Number: PHHY2016DE187214

PATIENT
  Age: 55 Year
  Sex: Female

DRUGS (7)
  1. CALCIUM [Suspect]
     Active Substance: CALCIUM
     Indication: MYASTHENIC SYNDROME
     Dosage: 1 G, QD
     Route: 065
     Dates: start: 20140502
  2. AZATHIOPRINE. [Suspect]
     Active Substance: AZATHIOPRINE
     Indication: PRODUCT USED FOR UNKNOWN INDICATION
     Dosage: 50 MG, BID
     Route: 065
     Dates: start: 20140502, end: 20140603
  3. AZATHIOPRINE. [Suspect]
     Active Substance: AZATHIOPRINE
     Dosage: 50 MG, TID
     Route: 065
     Dates: start: 20140604
  4. PREDNISOLON [Suspect]
     Active Substance: PREDNISOLONE
     Indication: MYASTHENIC SYNDROME
     Dosage: 40 MG, QD
     Route: 065
     Dates: start: 20140502
  5. VITAMIN D [Suspect]
     Active Substance: CHOLECALCIFEROL
     Indication: MYASTHENIC SYNDROME
     Dosage: 10 MG, QD
     Route: 065
     Dates: start: 20140502
  6. FIRDAPSE [Suspect]
     Active Substance: AMIFAMPRIDINE PHOSPHATE
     Indication: MYASTHENIC SYNDROME
     Dosage: 20 MG, TID
     Route: 048
     Dates: start: 20140414
  7. PANTAZOLE [Suspect]
     Active Substance: PANTOPRAZOLE SODIUM
     Indication: MYASTHENIC SYNDROME
     Dosage: 20 MG, QD
     Route: 065
     Dates: start: 20140502

REACTIONS (1)
  - Condition aggravated [Recovered/Resolved with Sequelae]

NARRATIVE: CASE EVENT DATE: 20160127
